FAERS Safety Report 12890751 (Version 10)
Quarter: 2018Q2

REPORT INFORMATION
  Report Type: Spontaneous
  Country: US (occurrence: US)
  Receive Date: 20161027
  Receipt Date: 20180508
  Transmission Date: 20180711
  Serious: Yes (Other)
  Sender: FDA-Public Use
  Company Number: US-ACTELION-A-US2016-144422

PATIENT
  Age: 73 Year
  Sex: Male
  Weight: 88.44 kg

DRUGS (6)
  1. OPSUMIT [Suspect]
     Active Substance: MACITENTAN
     Dosage: 10 MG, QD
     Route: 048
     Dates: end: 201704
  2. OPSUMIT [Suspect]
     Active Substance: MACITENTAN
     Indication: PULMONARY HYPERTENSION
     Dosage: 10 MG, QD
     Route: 048
     Dates: start: 20161003, end: 20161201
  3. WARFARIN [Concomitant]
     Active Substance: WARFARIN
  4. ADEMPAS [Concomitant]
     Active Substance: RIOCIGUAT
     Indication: PRODUCT USED FOR UNKNOWN INDICATION
     Route: 065
  5. ELIQUIS [Concomitant]
     Active Substance: APIXABAN
  6. SILDENAFIL CITRATE. [Concomitant]
     Active Substance: SILDENAFIL CITRATE

REACTIONS (22)
  - Condition aggravated [Unknown]
  - Gait disturbance [Unknown]
  - Asthenia [Unknown]
  - Eye disorder [Unknown]
  - Macular degeneration [Unknown]
  - Hypotension [Unknown]
  - Sinus disorder [Unknown]
  - Lung disorder [Unknown]
  - Stent placement [Unknown]
  - Dyspnoea exertional [Unknown]
  - Fatigue [Unknown]
  - Epistaxis [Unknown]
  - Pulmonary embolism [Unknown]
  - Blood glucose increased [Unknown]
  - Dyspnoea [Unknown]
  - Sinus congestion [Unknown]
  - Pain [Unknown]
  - Therapy non-responder [Unknown]
  - Type 2 diabetes mellitus [Unknown]
  - Hypokinesia [Unknown]
  - Cardiac disorder [Unknown]
  - Malaise [Unknown]
